FAERS Safety Report 7124320-5 (Version None)
Quarter: 2010Q4

REPORT INFORMATION
  Report Type: 
  Country: None (occurrence: None)
  Receive Date: 20101126
  Receipt Date: 20101117
  Transmission Date: 20110411
  Serious: Yes (Hospitalization)
  Sender: FDA-Public Use
  Company Number: PHHO2010NZ17406

PATIENT
  Sex: Male
  Weight: 90 kg

DRUGS (1)
  1. AFINITOR [Suspect]
     Indication: METASTATIC RENAL CELL CARCINOMA
     Dosage: 10MG, DAILY
     Route: 048
     Dates: start: 20101008, end: 20101115

REACTIONS (4)
  - EPISTAXIS [None]
  - HYPOTENSION [None]
  - TACHYCARDIA [None]
  - VASCULAR CAUTERISATION [None]
